FAERS Safety Report 16935897 (Version 1)
Quarter: 2019Q4

REPORT INFORMATION
  Report Type: Spontaneous
  Country: US (occurrence: US)
  Receive Date: 20191018
  Receipt Date: 20191018
  Transmission Date: 20200122
  Serious: Yes (Other)
  Sender: FDA-Public Use
  Company Number: US-PFIZER INC-2019452081

PATIENT
  Age: 68 Year

DRUGS (9)
  1. FINASTERIDE. [Concomitant]
     Active Substance: FINASTERIDE
     Indication: BENIGN PROSTATIC HYPERPLASIA
     Dosage: 5 MG, DAILY
     Dates: start: 20131002
  2. VIAGRA [Suspect]
     Active Substance: SILDENAFIL CITRATE
     Indication: ERECTILE DYSFUNCTION
     Dosage: 100 MG, TWICE A WEEK
     Route: 048
     Dates: start: 20060101, end: 20121231
  3. LEVOFLOXACIN. [Concomitant]
     Active Substance: LEVOFLOXACIN
     Indication: INFECTION
     Dosage: UNK
     Dates: start: 20130716, end: 20150413
  4. FLUTICASONE. [Concomitant]
     Active Substance: FLUTICASONE
     Indication: MULTIPLE ALLERGIES
     Dosage: UNK
     Dates: start: 20130703, end: 20150313
  5. CIALIS [Suspect]
     Active Substance: TADALAFIL
     Dosage: 2.5 MG, TWICE A WEEK
     Route: 048
     Dates: start: 20130219, end: 20130709
  6. PREDNISONE. [Concomitant]
     Active Substance: PREDNISONE
     Dosage: UNK
     Dates: start: 20130703, end: 20141007
  7. CIALIS [Suspect]
     Active Substance: TADALAFIL
     Indication: ERECTILE DYSFUNCTION
     Dosage: 20 MG, TWICE A WEEK
     Dates: start: 20060101, end: 20121231
  8. CIALIS [Suspect]
     Active Substance: TADALAFIL
     Dosage: 5 MG, TWICE A WEEK
     Route: 048
     Dates: start: 20130726, end: 20150413
  9. DICLOFENAC [Concomitant]
     Active Substance: DICLOFENAC
     Indication: ARTHRITIS
     Dosage: UNK
     Dates: start: 20130601, end: 20150413

REACTIONS (3)
  - Stress [Unknown]
  - Malignant melanoma [Unknown]
  - Depression [Unknown]

NARRATIVE: CASE EVENT DATE: 20131007
